FAERS Safety Report 21400951 (Version 1)
Quarter: 2022Q4

REPORT INFORMATION
  Report Type: Spontaneous
  Country: GB (occurrence: GB)
  Receive Date: 20221003
  Receipt Date: 20221003
  Transmission Date: 20230113
  Serious: Yes (Disabling)
  Sender: FDA-Public Use
  Company Number: GB-PFM-2022-07150

PATIENT

DRUGS (2)
  1. NERLYNX [Suspect]
     Active Substance: NERATINIB
     Indication: Breast cancer
     Dosage: 240 MG
     Route: 048
  2. NERLYNX [Suspect]
     Active Substance: NERATINIB
     Dosage: 120 MG
     Route: 048

REACTIONS (2)
  - Nail necrosis [Recovering/Resolving]
  - Paronychia [Recovering/Resolving]

NARRATIVE: CASE EVENT DATE: 20220923
